FAERS Safety Report 10219727 (Version 1)
Quarter: 2014Q2

REPORT INFORMATION
  Report Type: Spontaneous
  Country: US (occurrence: None)
  Receive Date: 20140603
  Receipt Date: 20140603
  Transmission Date: 20141212
  Serious: Yes (Other)
  Sender: FDA-Public Use
  Company Number: USW201405-000108

PATIENT
  Sex: Male
  Weight: 76.2 kg

DRUGS (12)
  1. APOKYN [Suspect]
     Indication: PARKINSON^S DISEASE
  2. NEUPRO PATCH (ROTIGOTINE) (ROTIGOTINE) [Concomitant]
  3. LIPITOR (ATORVASTATIN CALCIUM) (ATORVASTATIN CALCIUM) [Concomitant]
  4. METOPROLOL TARTRATE (MEOTPROLOL TARTRATE) (METOPROLOL TARTRATE) [Concomitant]
  5. ISOSOBRIDE (ISOSOBRIDE) (ISOSOBRIDE) [Concomitant]
  6. FINASTERIDE (FINASTERIDE) (FINASTERIDE) [Concomitant]
  7. OXYBUTYNIN (OXYBUTYNIN) (OXYBUTYNIN) [Concomitant]
  8. BACLOFEN (BACLOFEN) (BACLOFEN) [Concomitant]
  9. AMNATADINE (AMANTADINE) (AMANTADINE) [Concomitant]
  10. TIGAN (TRIMETHOBENZAMIDE) (TRIMETHOBENZAMIDE) [Concomitant]
  11. CINNAMINT (SODIUM FLUORIDE) (SODIUM FLUORIDE) [Concomitant]
  12. ASPIRIN (ASPIRIN) (ASPIRIN) [Concomitant]

REACTIONS (6)
  - Loss of consciousness [None]
  - Nausea [None]
  - Vomiting [None]
  - Transient ischaemic attack [None]
  - Myocardial infarction [None]
  - Somnolence [None]
